FAERS Safety Report 4932384-X (Version None)
Quarter: 2006Q1

REPORT INFORMATION
  Report Type: 
  Country: None (occurrence: None)
  Receive Date: 20060228
  Receipt Date: 20060213
  Transmission Date: 20060701
  Serious: Yes (Hospitalization)
  Sender: FDA-Public Use
  Company Number: WAES 0508USA04962

PATIENT
  Age: 59 Year
  Sex: Female
  Weight: 48.9885 kg

DRUGS (7)
  1. VIOXX [Suspect]
     Indication: ARTHRALGIA
     Dosage: 25 MG DAILY PO
     Route: 048
     Dates: start: 20000801, end: 20040829
  2. VIOXX [Suspect]
     Indication: ARTHRITIS
     Dosage: 25 MG DAILY PO
     Route: 048
     Dates: start: 20000801, end: 20040829
  3. ATIVAN [Concomitant]
  4. EFFEXOR [Concomitant]
  5. PAXIL [Concomitant]
  6. PREMARIN [Concomitant]
  7. WELLBUTRIN [Concomitant]

REACTIONS (30)
  - ARTHRALGIA [None]
  - ASTHENIA [None]
  - BRONCHITIS [None]
  - CAROTID ARTERY ATHEROMA [None]
  - CHRONIC OBSTRUCTIVE PULMONARY DISEASE [None]
  - CORONARY ARTERY DISEASE [None]
  - CORONARY ARTERY OCCLUSION [None]
  - DIARRHOEA [None]
  - DIZZINESS [None]
  - DYSARTHRIA [None]
  - DYSPNOEA [None]
  - DYSURIA [None]
  - FALL [None]
  - FATIGUE [None]
  - HYPERCHOLESTEROLAEMIA [None]
  - HYPERHIDROSIS [None]
  - HYPERTENSION [None]
  - HYPOTENSION [None]
  - LABYRINTHITIS [None]
  - MYOCARDIAL INFARCTION [None]
  - NAUSEA [None]
  - PNEUMONIA [None]
  - RENAL DISORDER [None]
  - RIB FRACTURE [None]
  - SINUS CONGESTION [None]
  - TOBACCO ABUSE [None]
  - TRANSIENT ISCHAEMIC ATTACK [None]
  - VENTRICULAR EXTRASYSTOLES [None]
  - VENTRICULAR TACHYCARDIA [None]
  - VERTIGO [None]
